FAERS Safety Report 18518910 (Version 2)
Quarter: 2020Q4

REPORT INFORMATION
  Report Type: Spontaneous
  Country: US (occurrence: US)
  Receive Date: 20201118
  Receipt Date: 20201221
  Transmission Date: 20210114
  Serious: Yes (Disabling, Congenital Anomaly, Other)
  Sender: FDA-Public Use
  Company Number: US-PURDUE-USA-2020-0176524

PATIENT
  Sex: Male
  Weight: 92 kg

DRUGS (15)
  1. TRAMADOL. [Suspect]
     Active Substance: TRAMADOL
     Indication: PAIN
  2. MORPHINE [Suspect]
     Active Substance: MORPHINE
     Indication: PAIN
     Dosage: 4 MG, UNK
     Route: 042
     Dates: start: 20180312, end: 20180312
  3. GENTAMICIN. [Concomitant]
     Active Substance: GENTAMICIN
     Indication: PRODUCT USED FOR UNKNOWN INDICATION
     Dosage: 235 MG, UNK
     Route: 042
     Dates: start: 20180312, end: 20180312
  4. ZOFRAN [Concomitant]
     Active Substance: ONDANSETRON HYDROCHLORIDE
     Indication: VOMITING
  5. TYLENOL [Concomitant]
     Active Substance: ACETAMINOPHEN
     Indication: PYREXIA
  6. FENTANYL. [Suspect]
     Active Substance: FENTANYL
     Indication: PAIN
     Dosage: 50 MCG, UNK
     Route: 042
     Dates: start: 20180312, end: 20180312
  7. MOTRIN [Concomitant]
     Active Substance: IBUPROFEN
     Indication: PYREXIA
  8. MORPHINE SULFATE EXTENDED-RELEASE TABLETS (RHODES 74-769, 74-862) [Suspect]
     Active Substance: MORPHINE SULFATE
     Indication: PRODUCT USED FOR UNKNOWN INDICATION
     Dosage: UNKNOWN
     Route: 048
  9. FENTANYL. [Suspect]
     Active Substance: FENTANYL
     Indication: PRODUCT USED FOR UNKNOWN INDICATION
     Dosage: UNKNOWN
     Route: 048
  10. TORADOL [Suspect]
     Active Substance: KETOROLAC TROMETHAMINE
     Indication: PRODUCT USED FOR UNKNOWN INDICATION
     Dosage: 30 MG, UNK
     Route: 042
     Dates: start: 20180312, end: 20180312
  11. TYLENOL [Concomitant]
     Active Substance: ACETAMINOPHEN
     Indication: PAIN
     Dosage: 650 MG, Q6H PRN
     Route: 048
     Dates: start: 20180312, end: 20180312
  12. MOTRIN [Concomitant]
     Active Substance: IBUPROFEN
     Indication: PAIN
     Dosage: 600 MG, Q6H PRN
     Route: 048
     Dates: start: 20180312, end: 20180312
  13. TRAMADOL. [Suspect]
     Active Substance: TRAMADOL
     Indication: PRODUCT USED FOR UNKNOWN INDICATION
     Dosage: 50 MG, Q6H PRN
     Route: 048
  14. MORPHINE SULFATE EXTENDED-RELEASE TABLETS (RHODES 74-769, 74-862) [Suspect]
     Active Substance: MORPHINE SULFATE
     Indication: PAIN
  15. ZOFRAN [Concomitant]
     Active Substance: ONDANSETRON HYDROCHLORIDE
     Indication: NAUSEA
     Dosage: 8 MG, UNK
     Route: 042
     Dates: start: 20180312, end: 20180312

REACTIONS (24)
  - Learning disability [Unknown]
  - Visual impairment [Unknown]
  - Personality change [Unknown]
  - Psychiatric symptom [Unknown]
  - Depression [Unknown]
  - Binocular eye movement disorder [Unknown]
  - Feelings of worthlessness [Unknown]
  - Developmental delay [Unknown]
  - Motor dysfunction [Unknown]
  - Pain [Not Recovered/Not Resolved]
  - Accommodation disorder [Unknown]
  - Brain injury [Unknown]
  - Congenital anomaly [Unknown]
  - Myopia [Unknown]
  - Saccadic eye movement [Unknown]
  - Visual field defect [Unknown]
  - Emotional distress [Not Recovered/Not Resolved]
  - Vision blurred [Unknown]
  - Toxicity to various agents [Unknown]
  - Educational problem [Unknown]
  - Memory impairment [Unknown]
  - Anxiety [Unknown]
  - Social anxiety disorder [Unknown]
  - Psychological trauma [Not Recovered/Not Resolved]
